FAERS Safety Report 4320502-6 (Version None)
Quarter: 2004Q1

REPORT INFORMATION
  Report Type: 
  Country: None (occurrence: None)
  Receive Date: 20040322
  Receipt Date: 20010801
  Transmission Date: 20041129
  Serious: Yes (Hospitalization)
  Sender: FDA-Public Use
  Company Number: 200116516GDDC

PATIENT
  Age: 14 Week
  Sex: Female

DRUGS (5)
  1. PREDNISOLONE [Suspect]
     Indication: HAEMANGIOMA
     Route: 048
  2. HYDROCORTISONE [Suspect]
     Dosage: DOSE: UNK
     Route: 042
  3. METHYLPREDNISOLONE [Suspect]
     Indication: HAEMANGIOMA
     Route: 042
  4. CEFOTAXIME [Concomitant]
     Route: 042
  5. CLINDAMYCIN HCL [Concomitant]
     Dosage: DOSE: UNK
     Route: 042

REACTIONS (5)
  - ACUTE RESPIRATORY DISTRESS SYNDROME [None]
  - BLOOD LACTATE DEHYDROGENASE INCREASED [None]
  - HYPOXIA [None]
  - LYMPHOPENIA [None]
  - PNEUMOCYSTIS CARINII PNEUMONIA [None]
